FAERS Safety Report 8090493-3 (Version None)
Quarter: 2012Q1

REPORT INFORMATION
  Report Type: 
  Country: None (occurrence: None)
  Receive Date: 20120124
  Receipt Date: 20111205
  Transmission Date: 20120608
  Serious: Yes (Death)
  Sender: FDA-Public Use
  Company Number: 2011SP056850

PATIENT
  Age: 48 Year
  Sex: Male

DRUGS (9)
  1. MIRTAZAPINE [Suspect]
     Indication: DEPRESSION
     Dosage: 15 MG; QD; PO
     Route: 048
     Dates: start: 20110104
  2. FLUVOXAMINE MALEATE [Concomitant]
  3. DIAZEPAM [Concomitant]
  4. ARIPIPRAZOLE [Concomitant]
  5. ZOPICLONE [Concomitant]
  6. CARBAMAZEPINE [Concomitant]
  7. QUAZEPAM [Concomitant]
  8. ETIZOLAM [Concomitant]
  9. GLIMEPIRIDE [Concomitant]

REACTIONS (2)
  - HYPERTRIGLYCERIDAEMIA [None]
  - HYPERGLYCAEMIA [None]
